FAERS Safety Report 10693969 (Version 1)
Quarter: 2015Q1

REPORT INFORMATION
  Report Type: Spontaneous
  Country: US (occurrence: US)
  Receive Date: 20150106
  Receipt Date: 20150106
  Transmission Date: 20150721
  Serious: No
  Sender: FDA-Public Use
  Company Number: US-TEVA-526492USA

PATIENT
  Sex: Male
  Weight: 69.01 kg

DRUGS (2)
  1. VIVITROL [Concomitant]
     Active Substance: NALTREXONE
     Indication: BLOOD CHOLESTEROL INCREASED
  2. AZILECT [Suspect]
     Active Substance: RASAGILINE MESYLATE
     Indication: PARKINSON^S DISEASE
     Dates: start: 201407

REACTIONS (3)
  - Muscle fatigue [Unknown]
  - Abdominal discomfort [Unknown]
  - Weight decreased [Unknown]
